FAERS Safety Report 26013552 (Version 1)
Quarter: 2025Q4

REPORT INFORMATION
  Report Type: Spontaneous
  Country: EU (occurrence: EU)
  Receive Date: 20251107
  Receipt Date: 20251107
  Transmission Date: 20260118
  Serious: Yes (Hospitalization)
  Sender: MERCK SHARP & DOHME LLC
  Company Number: None

PATIENT
  Age: 40 Year
  Sex: Female
  Weight: 64 kg

DRUGS (17)
  1. DAPTOMYCIN [Suspect]
     Active Substance: DAPTOMYCIN
     Indication: Pneumonia
     Dosage: DOSE DESCRIPTION : 10 MILLIGRAM/KILOGRAM, QOD?DAILY DOSE : 5 MILLIGRAM/KILOGRAM?REGIMEN DOSE : 50...
     Dates: start: 20230206, end: 20230214
  2. AVIBACTAM SODIUM\CEFTAZIDIME [Suspect]
     Active Substance: AVIBACTAM SODIUM\CEFTAZIDIME
     Indication: Pneumonia
     Dosage: DOSE DESCRIPTION : 0.75 GRAM, QD?DAILY DOSE : 0.75 GRAM?CONCENTRATION: 2/0.5 GRAM?REGIMEN DOSE : ...
     Dates: start: 20230206, end: 20230214
  3. PHENOBARBITAL [Suspect]
     Active Substance: PHENOBARBITAL
     Indication: Status epilepticus
     Dosage: DOSE DESCRIPTION : 400 MILLIGRAM, QD?DAILY DOSE : 400 MILLIGRAM
     Route: 048
     Dates: start: 20221227
  4. NIMODIPINE [Concomitant]
     Active Substance: NIMODIPINE
     Indication: Product used for unknown indication
     Dosage: DOSE DESCRIPTION : UNK
     Dates: start: 20230208, end: 20230213
  5. SUFENTANIL CITRATE [Concomitant]
     Active Substance: SUFENTANIL CITRATE
     Indication: Analgesic intervention supportive therapy
     Dosage: DOSE DESCRIPTION : UNK
     Dates: start: 20230207, end: 20230214
  6. PERAMPANEL [Concomitant]
     Active Substance: PERAMPANEL
     Indication: Status epilepticus
     Dosage: DOSE DESCRIPTION : 12 MILLIGRAM, QD?DAILY DOSE : 12 MILLIGRAM
     Dates: start: 20230131
  7. PERAMPANEL [Concomitant]
     Active Substance: PERAMPANEL
     Indication: Status epilepticus
     Dosage: DOSE DESCRIPTION : 6 MILLIGRAM, QD?DAILY DOSE : 6 MILLIGRAM?REGIMEN DOSE : 120  MILLIGRAM
     Dates: start: 20230110, end: 20230130
  8. CARBAMAZEPINE [Concomitant]
     Active Substance: CARBAMAZEPINE
     Indication: Status epilepticus
     Dosage: DOSE DESCRIPTION : 1200 MILLIGRAM, QD?DAILY DOSE : 1200 MILLIGRAM
     Route: 048
     Dates: start: 20230131
  9. CALCIPARINE [Concomitant]
     Active Substance: HEPARIN CALCIUM
     Indication: Subclavian vein thrombosis
     Dosage: DOSE DESCRIPTION : 250 INTERNATIONAL UNIT/KILOGRAM, Q12H?DAILY DOSE : 500 INTERNATIONAL UNIT/KILO...
     Dates: start: 20230204, end: 20230213
  10. CALCIPARINE [Concomitant]
     Active Substance: HEPARIN CALCIUM
     Indication: Subclavian vein thrombosis
     Dosage: DOSE DESCRIPTION : 250 INTERNATIONAL UNIT/KILOGRAM, Q12H?DAILY DOSE : 500 INTERNATIONAL UNIT/KILO...
     Dates: start: 20230217
  11. PROPOFOL [Concomitant]
     Active Substance: PROPOFOL
     Indication: Status epilepticus
     Dosage: DOSE DESCRIPTION : 200 MILLIGRAM, QH?DAILY DOSE : 4800 MILLIGRAM?REGIMEN DOSE : 100800  MILLIGRAM
     Dates: start: 20230124, end: 20230213
  12. PROPOFOL [Concomitant]
     Active Substance: PROPOFOL
     Indication: Status epilepticus
     Dosage: DOSE DESCRIPTION : 100 MILLIGRAM, QH?DAILY DOSE : 2400 MILLIGRAM?REGIMEN DOSE : 2400  MILLIGRAM
     Dates: start: 20230123, end: 20230123
  13. SYNACTHENE [TETRACOSACTIDE] [Concomitant]
     Indication: Product used for unknown indication
     Dosage: DOSE DESCRIPTION : 0.25 MILLIGRAM, Q6H?DAILY DOSE : 1 MILLIGRAM?CONCENTRATION: 0.25 MILLIGRAM PER...
     Dates: start: 20230208, end: 20230213
  14. MIDAZOLAM HYDROCHLORIDE [Concomitant]
     Active Substance: MIDAZOLAM HYDROCHLORIDE
     Indication: Status epilepticus
     Dosage: DOSE DESCRIPTION : 20 MILLIGRAM, QH?DAILY DOSE : 480 MILLIGRAM?REGIMEN DOSE : 21600  MILLIGRAM
     Dates: start: 20221231, end: 20230213
  15. TOPIRAMATE [Concomitant]
     Active Substance: TOPIRAMATE
     Indication: Status epilepticus
     Dosage: DOSE DESCRIPTION : 400 MILLIGRAM, Q12H?DAILY DOSE : 800 MILLIGRAM
     Dates: start: 20230118
  16. FUROSEMIDE [Concomitant]
     Active Substance: FUROSEMIDE
     Indication: Oliguria
     Dosage: DOSE DESCRIPTION : UNK
     Dates: start: 20230217, end: 20230217
  17. FUROSEMIDE [Concomitant]
     Active Substance: FUROSEMIDE
     Indication: Oliguria
     Dosage: DOSE DESCRIPTION : UNK
     Dates: start: 20230208, end: 20230214

REACTIONS (1)
  - Mixed liver injury [Recovering/Resolving]

NARRATIVE: CASE EVENT DATE: 20230214
